FAERS Safety Report 6665741-4 (Version None)
Quarter: 2010Q2

REPORT INFORMATION
  Report Type: 
  Country: None (occurrence: None)
  Receive Date: 20100402
  Receipt Date: 20100324
  Transmission Date: 20101027
  Serious: Yes (Hospitalization)
  Sender: FDA-Public Use
  Company Number: FR-RB-000339-10

PATIENT
  Sex: Male
  Weight: 70 kg

DRUGS (6)
  1. SUBUTEX [Suspect]
     Route: 048
     Dates: start: 19960101, end: 20100101
  2. CARBAMAZEPINE [Concomitant]
     Indication: DEPRESSION
     Route: 048
     Dates: start: 20081213
  3. TROPATEPINE [Concomitant]
     Indication: DRUG USE FOR UNKNOWN INDICATION
     Route: 048
     Dates: start: 20081127
  4. MIANSERIN [Concomitant]
     Indication: DEPRESSION
     Route: 048
     Dates: start: 20090807
  5. HALOPERIDOL [Concomitant]
     Route: 030
     Dates: start: 20090217
  6. LEVOMEPROMAZINE [Concomitant]
     Indication: ANXIETY
     Route: 048
     Dates: start: 20090101

REACTIONS (3)
  - ANXIETY [None]
  - OVERDOSE [None]
  - PSYCHOTIC DISORDER [None]
